FAERS Safety Report 20114376 (Version 2)
Quarter: 2021Q4

REPORT INFORMATION
  Report Type: Spontaneous
  Country: US (occurrence: US)
  Receive Date: 20211125
  Receipt Date: 20211206
  Transmission Date: 20220303
  Serious: Yes (Hospitalization)
  Sender: FDA-Public Use
  Company Number: US-TEVA-2021-US-1979984

PATIENT
  Age: 60 Year
  Sex: Male

DRUGS (6)
  1. METHYLPREDNISOLONE [Suspect]
     Active Substance: METHYLPREDNISOLONE
     Indication: Leukoencephalopathy
     Dosage: 1 GRAM DAILY;
     Route: 042
     Dates: start: 2018, end: 2018
  2. METHYLPREDNISOLONE [Suspect]
     Active Substance: METHYLPREDNISOLONE
     Dosage: 1 GRAM DAILY;
     Route: 042
     Dates: start: 2018, end: 2018
  3. TESTOSTERONE ENANTHATE [Suspect]
     Active Substance: TESTOSTERONE ENANTHATE
     Indication: Muscle building therapy
     Dosage: INJECTABLE
     Route: 065
  4. LACOSAMIDE [Suspect]
     Active Substance: LACOSAMIDE
     Indication: Leukoencephalopathy
     Route: 065
     Dates: start: 2018, end: 2018
  5. DIANABOL [Suspect]
     Active Substance: METHANDROSTENOLONE
     Indication: Muscle building therapy
     Dosage: INJECTABLE
     Route: 065
  6. HUMAN IMMUNOGLOBULIN G [Suspect]
     Active Substance: HUMAN IMMUNOGLOBULIN G
     Indication: Leukoencephalopathy
     Dosage: OVER A 4 DAY COURSE
     Route: 042
     Dates: start: 2018, end: 2018

REACTIONS (6)
  - Leukoencephalopathy [Recovering/Resolving]
  - Drug abuse [Recovering/Resolving]
  - Unresponsive to stimuli [Recovering/Resolving]
  - Loss of personal independence in daily activities [Recovering/Resolving]
  - Aphasia [Recovering/Resolving]
  - Drug ineffective [Unknown]

NARRATIVE: CASE EVENT DATE: 20180101
